FAERS Safety Report 9479520 (Version 1)
Quarter: 2013Q3

REPORT INFORMATION
  Report Type: Report from Study
  Country: JP (occurrence: JP)
  Receive Date: 20130827
  Receipt Date: 20130827
  Transmission Date: 20140515
  Serious: Yes (Other)
  Sender: FDA-Public Use
  Company Number: JP-GILEAD-2013-0082003

PATIENT
  Age: 35 Year
  Sex: Male

DRUGS (4)
  1. EMTRICITABINE/TENOFOVIR DISOPROXIL FUMARATE [Suspect]
     Indication: HIV INFECTION
     Dosage: 1 DF, UNK
     Route: 048
     Dates: start: 20090917
  2. KALETRA [Suspect]
     Indication: HIV INFECTION
     Dosage: 4 DF, UNK
     Route: 048
     Dates: start: 20090917
  3. LENDORMIN [Concomitant]
     Indication: HIV INFECTION
     Dosage: UNK UNKNOWN, UNK
     Route: 048
     Dates: start: 20101217
  4. LORAZEPAM [Concomitant]
     Indication: PRODUCT USED FOR UNKNOWN INDICATION
     Dosage: UNK UNKNOWN, UNK
     Dates: start: 20120405

REACTIONS (1)
  - Osteoporosis [Not Recovered/Not Resolved]
